FAERS Safety Report 5893277-7 (Version None)
Quarter: 2008Q3

REPORT INFORMATION
  Report Type: 
  Country: None (occurrence: None)
  Receive Date: 20080923
  Receipt Date: 20080912
  Transmission Date: 20090109
  Serious: Yes (Hospitalization)
  Sender: FDA-Public Use
  Company Number: A0748614A

PATIENT
  Age: 62 Year
  Sex: Male

DRUGS (19)
  1. AVANDIA [Suspect]
     Dosage: 4MG TWICE PER DAY
     Route: 048
     Dates: start: 19990101, end: 20070101
  2. METOPROLOL TARTRATE [Concomitant]
  3. PLAVIX [Concomitant]
  4. NEXIUM [Concomitant]
  5. TRIMOX [Concomitant]
  6. ALTACE [Concomitant]
  7. WARFARIN SODIUM [Concomitant]
  8. VERAPAMIL [Concomitant]
  9. LANOXIN [Concomitant]
  10. RYTHMOL [Concomitant]
  11. PREVACID [Concomitant]
  12. DIOVAN [Concomitant]
  13. LIPITOR [Concomitant]
  14. GLYBURIDE [Concomitant]
  15. REZULIN [Concomitant]
  16. ZOCOR [Concomitant]
  17. METFORMIN HCL [Concomitant]
  18. HYDROCHLOROTHIAZIDE [Concomitant]
  19. TOPROL-XL [Concomitant]

REACTIONS (3)
  - CARDIAC DISORDER [None]
  - CEREBROVASCULAR ACCIDENT [None]
  - MYOCARDIAL INFARCTION [None]
